FAERS Safety Report 24208572 (Version 1)
Quarter: 2024Q3

REPORT INFORMATION
  Report Type: Spontaneous
  Country: FR (occurrence: FR)
  Receive Date: 20240814
  Receipt Date: 20240814
  Transmission Date: 20241017
  Serious: Yes (Death, Hospitalization)
  Sender: TEVA
  Company Number: FR-TEVA-VS-3232028

PATIENT
  Age: 38 Year
  Sex: Male

DRUGS (1)
  1. FENTANYL [Suspect]
     Active Substance: FENTANYL\FENTANYL CITRATE
     Indication: Product used for unknown indication
     Route: 065

REACTIONS (4)
  - Cardio-respiratory arrest [Fatal]
  - Overdose [Fatal]
  - Toxicity to various agents [Fatal]
  - Drug abuse [Fatal]
